FAERS Safety Report 20278947 (Version 2)
Quarter: 2022Q1

REPORT INFORMATION
  Report Type: Report from Study
  Country: BD (occurrence: BD)
  Receive Date: 20220103
  Receipt Date: 20220110
  Transmission Date: 20220423
  Serious: Yes (Death, Hospitalization)
  Sender: FDA-Public Use
  Company Number: BD-NOVARTISPH-NVSC2022BD000440

PATIENT
  Age: 72 Year
  Sex: Male
  Weight: 53 kg

DRUGS (2)
  1. ZOMETA [Suspect]
     Active Substance: ZOLEDRONIC ACID
     Indication: Hepatic cancer
     Dosage: 4 MG, Q4W
     Route: 065
     Dates: start: 202108, end: 202111
  2. ZOMETA [Suspect]
     Active Substance: ZOLEDRONIC ACID
     Indication: Metastases to bone

REACTIONS (2)
  - Hepatic cancer [Fatal]
  - Malignant neoplasm progression [Fatal]

NARRATIVE: CASE EVENT DATE: 20210101
